FAERS Safety Report 7932736-X (Version None)
Quarter: 2011Q4

REPORT INFORMATION
  Report Type: 
  Country: None (occurrence: None)
  Receive Date: 20111122
  Receipt Date: 20111116
  Transmission Date: 20120403
  Serious: Yes (Hospitalization, Other)
  Sender: FDA-Public Use
  Company Number: US-JNJFOC-20110611323

PATIENT
  Sex: Female

DRUGS (1)
  1. LEVAQUIN [Suspect]
     Indication: UPPER RESPIRATORY TRACT INFECTION
     Route: 048
     Dates: start: 20091001

REACTIONS (6)
  - TENDON DISORDER [None]
  - CARTILAGE INJURY [None]
  - JOINT INJURY [None]
  - ROTATOR CUFF SYNDROME [None]
  - MUSCLE RUPTURE [None]
  - TENDON RUPTURE [None]
